FAERS Safety Report 6987482-6 (Version None)
Quarter: 2010Q3

REPORT INFORMATION
  Report Type: 
  Country: None (occurrence: None)
  Receive Date: 20100916
  Receipt Date: 20100909
  Transmission Date: 20110219
  Serious: Yes (Death, Other)
  Sender: FDA-Public Use
  Company Number: PHHY2010GB60823

PATIENT
  Age: 29 Year
  Sex: Male
  Weight: 81 kg

DRUGS (3)
  1. CLOZAPINE [Suspect]
  2. DULOXETINE [Suspect]
  3. NALTREXONE [Concomitant]

REACTIONS (8)
  - ANTIPSYCHOTIC DRUG LEVEL INCREASED [None]
  - CARDIAC ARREST [None]
  - CARDIOMEGALY [None]
  - DUODENITIS [None]
  - GASTROINTESTINAL EROSION [None]
  - INTESTINAL CONGESTION [None]
  - PULMONARY CONGESTION [None]
  - PULMONARY OEDEMA [None]
